FAERS Safety Report 11752733 (Version 2)
Quarter: 2015Q4

REPORT INFORMATION
  Report Type: Spontaneous
  Country: US (occurrence: US)
  Receive Date: 20151119
  Receipt Date: 20151230
  Transmission Date: 20160304
  Serious: No
  Sender: FDA-Public Use
  Company Number: US-AMGEN-USASP2015121850

PATIENT
  Age: 55 Year
  Sex: Female

DRUGS (1)
  1. ENBREL [Suspect]
     Active Substance: ETANERCEPT
     Indication: PSORIASIS
     Dosage: 50 MG, ONCE WEEKLY
     Route: 058
     Dates: start: 20150212

REACTIONS (6)
  - Depression [Not Recovered/Not Resolved]
  - Arthralgia [Recovered/Resolved]
  - Pyrexia [Not Recovered/Not Resolved]
  - Skin disorder [Not Recovered/Not Resolved]
  - Cough [Recovered/Resolved]
  - Toothache [Not Recovered/Not Resolved]

NARRATIVE: CASE EVENT DATE: 2015
